FAERS Safety Report 16471130 (Version 1)
Quarter: 2019Q2

REPORT INFORMATION
  Report Type: Not Available
  Country: US (occurrence: US)
  Receive Date: 20190624
  Receipt Date: 20190624
  Transmission Date: 20190711
  Serious: Yes (Death, Hospitalization)
  Sender: FDA-Public Use
  Company Number: US-SERVIER-S19006525

PATIENT

DRUGS (6)
  1. TN UNSPECIFIED [CYTARABINE] [Suspect]
     Active Substance: CYTARABINE
     Indication: B-CELL TYPE ACUTE LEUKAEMIA
     Dosage: UNK ON D1
     Route: 037
  2. TN UNSPECIFIED [VINCRISTINE SULFATE] [Suspect]
     Active Substance: VINCRISTINE SULFATE
     Indication: B-CELL TYPE ACUTE LEUKAEMIA
     Dosage: 1.5 MG/M2, DAYS 1,8,15,22
     Route: 042
  3. TN UNSPECIFIED [PREDNISONE] [Suspect]
     Active Substance: PREDNISONE
     Indication: B-CELL TYPE ACUTE LEUKAEMIA
     Dosage: 30 MG/M2, ON DAYS 1-28
     Route: 048
  4. TN UNSPECIFIED [METHOTREXATE SODIUM] [Suspect]
     Active Substance: METHOTREXATE SODIUM
     Indication: B-CELL TYPE ACUTE LEUKAEMIA
     Dosage: UNK, DAYS 8,29 FOR CNS1/2 OR DAYS 8,15,22,29 FOR CNS3
     Route: 037
  5. ONCASPAR [Suspect]
     Active Substance: PEGASPARGASE
     Indication: B-CELL TYPE ACUTE LEUKAEMIA
     Dosage: 2500 IU/M2, OVER 1?2?H (DAYS 4,15, 43)
     Route: 042
  6. TN UNSPECIFIED [DAUNORUBICIN HYDROCHLORIDE] [Suspect]
     Active Substance: DAUNORUBICIN HYDROCHLORIDE
     Indication: B-CELL TYPE ACUTE LEUKAEMIA
     Dosage: 25 MG/M2, DAYS 1,8,15,22
     Route: 042

REACTIONS (12)
  - Aspartate aminotransferase increased [Not Recovered/Not Resolved]
  - Pancreatic pseudocyst [Not Recovered/Not Resolved]
  - Hepatic steatosis [Unknown]
  - Alanine aminotransferase increased [Not Recovered/Not Resolved]
  - Ascites [Unknown]
  - Coagulation time prolonged [Not Recovered/Not Resolved]
  - White blood cell count increased [Unknown]
  - Hyperammonaemia [Not Recovered/Not Resolved]
  - Haemorrhagic necrotic pancreatitis [Fatal]
  - Hypotension [Unknown]
  - Haemoglobin decreased [Unknown]
  - Hyperbilirubinaemia [Recovering/Resolving]

NARRATIVE: CASE EVENT DATE: 2019
